FAERS Safety Report 24780032 (Version 1)
Quarter: 2024Q4

REPORT INFORMATION
  Report Type: Spontaneous
  Country: US (occurrence: US)
  Receive Date: 20241227
  Receipt Date: 20241227
  Transmission Date: 20250114
  Serious: Yes (Hospitalization, Other)
  Sender: AMGEN
  Company Number: US-AMGEN-USASP2024247960

PATIENT
  Age: 61 Year
  Sex: Male

DRUGS (1)
  1. PREDNISONE [Suspect]
     Active Substance: PREDNISONE
     Indication: Pancreatitis
     Dosage: 40 MILLIGRAM, QD
     Route: 065

REACTIONS (4)
  - Biliary sepsis [Recovered/Resolved]
  - Obstruction gastric [Recovered/Resolved]
  - Weight increased [Recovered/Resolved]
  - Off label use [Unknown]
